FAERS Safety Report 7451006-X (Version None)
Quarter: 2011Q2

REPORT INFORMATION
  Report Type: 
  Country: None (occurrence: None)
  Receive Date: 20110422
  Receipt Date: 20110406
  Transmission Date: 20111010
  Serious: Yes (Hospitalization, Other)
  Sender: FDA-Public Use
  Company Number: 2011AP000679

PATIENT
  Age: 69 Year
  Sex: Female

DRUGS (5)
  1. LITHIUM CARBONATE [Suspect]
     Indication: SCHIZOAFFECTIVE DISORDER BIPOLAR TYPE
     Dosage: 300 MG QD, 400 MG; QD
  2. CLONAZEPAM [Concomitant]
  3. ARIPIPRAZOLE [Suspect]
     Indication: SCHIZOAFFECTIVE DISORDER BIPOLAR TYPE
     Dosage: 5 MG, AM; 25 MG, HS;
  4. TRAZODONE HCL [Concomitant]
  5. DIVALPROEX SODIUM [Concomitant]

REACTIONS (21)
  - MIOSIS [None]
  - HYPERNATRAEMIA [None]
  - DYSARTHRIA [None]
  - ELECTROCARDIOGRAM T WAVE INVERSION [None]
  - SEDATION [None]
  - EXTENSOR PLANTAR RESPONSE [None]
  - ELECTROCARDIOGRAM QT PROLONGED [None]
  - TOXICITY TO VARIOUS AGENTS [None]
  - DISORIENTATION [None]
  - BLOOD UREA INCREASED [None]
  - ELECTROCARDIOGRAM T WAVE ABNORMAL [None]
  - CHOREOATHETOSIS [None]
  - LETHARGY [None]
  - ANTIDEPRESSANT DRUG LEVEL ABOVE THERAPEUTIC [None]
  - PROTRUSION TONGUE [None]
  - PYREXIA [None]
  - NEUROTOXICITY [None]
  - SOCIAL AVOIDANT BEHAVIOUR [None]
  - CREATINE URINE INCREASED [None]
  - DRUG INTERACTION [None]
  - BODY TEMPERATURE INCREASED [None]
